FAERS Safety Report 22081638 (Version 1)
Quarter: 2023Q1

REPORT INFORMATION
  Report Type: Spontaneous
  Country: US (occurrence: US)
  Receive Date: 20230310
  Receipt Date: 20230310
  Transmission Date: 20230417
  Serious: No
  Sender: FDA-Public Use
  Company Number: US-STRIDES ARCOLAB LIMITED-2023SP000967

PATIENT
  Age: 64 Year
  Sex: Female

DRUGS (25)
  1. PENICILLIN V POTASSIUM [Suspect]
     Active Substance: PENICILLIN V POTASSIUM
     Indication: Product used for unknown indication
     Dosage: UNK
     Route: 065
  2. METRONIDAZOLE [Suspect]
     Active Substance: METRONIDAZOLE
     Indication: Pseudomonas infection
     Dosage: UNK
     Route: 065
  3. METRONIDAZOLE [Suspect]
     Active Substance: METRONIDAZOLE
     Indication: Klebsiella infection
     Dosage: UNK; 10-DAY COURSE
     Route: 065
  4. METRONIDAZOLE [Suspect]
     Active Substance: METRONIDAZOLE
     Indication: Enterobacter infection
  5. METRONIDAZOLE [Suspect]
     Active Substance: METRONIDAZOLE
     Indication: Candida infection
  6. AZTREONAM [Concomitant]
     Active Substance: AZTREONAM
     Indication: Product used for unknown indication
     Dosage: UNK
     Route: 065
  7. MEROPENEM [Concomitant]
     Active Substance: MEROPENEM
     Indication: Product used for unknown indication
     Dosage: UNK
     Route: 065
  8. MEROPENEM [Concomitant]
     Active Substance: MEROPENEM
     Dosage: UNK
     Route: 065
  9. FLUCONAZOLE [Concomitant]
     Active Substance: FLUCONAZOLE
     Indication: Pseudomonas infection
     Dosage: UNK
     Route: 065
  10. FLUCONAZOLE [Concomitant]
     Active Substance: FLUCONAZOLE
     Indication: Klebsiella infection
     Dosage: UNK
     Route: 065
  11. FLUCONAZOLE [Concomitant]
     Active Substance: FLUCONAZOLE
     Indication: Enterobacter infection
     Dosage: UNK; 10-DAY COURSE
     Route: 065
  12. FLUCONAZOLE [Concomitant]
     Active Substance: FLUCONAZOLE
     Indication: Candida infection
  13. LINEZOLID [Concomitant]
     Active Substance: LINEZOLID
     Indication: Pseudomonas infection
     Dosage: UNK
     Route: 065
  14. LINEZOLID [Concomitant]
     Active Substance: LINEZOLID
     Indication: Klebsiella infection
     Dosage: UNK; 10-DAY COURSE
     Route: 065
  15. LINEZOLID [Concomitant]
     Active Substance: LINEZOLID
     Indication: Enterobacter infection
  16. LINEZOLID [Concomitant]
     Active Substance: LINEZOLID
     Indication: Candida infection
  17. DAPTOMYCIN [Concomitant]
     Active Substance: DAPTOMYCIN
     Indication: Product used for unknown indication
     Dosage: 9.6 MILLIGRAM/KILOGRAM; PER DAY
     Route: 065
  18. CEFTAROLINE [Concomitant]
     Active Substance: CEFTAROLINE
     Indication: Product used for unknown indication
     Dosage: UNK
     Route: 065
  19. CEFTRIAXONE [Concomitant]
     Active Substance: CEFTRIAXONE
     Indication: Enterocutaneous fistula
     Dosage: UNK
     Route: 065
  20. CEFTRIAXONE [Concomitant]
     Active Substance: CEFTRIAXONE
     Dosage: UNK
     Route: 065
  21. CEFEPIME [Concomitant]
     Active Substance: CEFEPIME HYDROCHLORIDE
     Indication: Enterocutaneous fistula
     Dosage: UNK
     Route: 065
  22. CEFEPIME [Concomitant]
     Active Substance: CEFEPIME HYDROCHLORIDE
     Indication: Pseudomonas infection
     Dosage: UNK; 10-DAY COURSE
     Route: 065
  23. CEFEPIME [Concomitant]
     Active Substance: CEFEPIME HYDROCHLORIDE
     Indication: Klebsiella infection
  24. CEFEPIME [Concomitant]
     Active Substance: CEFEPIME HYDROCHLORIDE
     Indication: Enterobacter infection
  25. CEFEPIME [Concomitant]
     Active Substance: CEFEPIME HYDROCHLORIDE
     Indication: Candida infection

REACTIONS (2)
  - Drug hypersensitivity [Unknown]
  - Off label use [Unknown]
